FAERS Safety Report 6962662 (Version 2)
Quarter: 2025Q2

REPORT INFORMATION
  Report Type: Spontaneous
  Country: TN (occurrence: TN)
  Receive Date: 20090407
  Receipt Date: 20250402
  Transmission Date: 20250717
  Serious: Yes (Hospitalization, Other)
  Sender: PFIZER
  Company Number: TN-PFIZER INC-2009178767

PATIENT
  Age: 56 Year
  Sex: Male

DRUGS (2)
  1. SUTENT [Interacting]
     Active Substance: SUNITINIB MALATE
     Indication: Gastrointestinal stromal tumour
     Route: 048
     Dates: start: 20070427
  2. METRONIDAZOLE\SPIRAMYCIN [Interacting]
     Active Substance: METRONIDAZOLE\SPIRAMYCIN
     Indication: Tooth abscess
     Route: 048
     Dates: start: 20070507, end: 20070508

REACTIONS (6)
  - Drug interaction [Unknown]
  - Asthenia [Recovered/Resolved]
  - Decreased appetite [Recovered/Resolved]
  - Dysarthria [Recovered/Resolved]
  - Dyspnoea [Recovered/Resolved]
  - Fatigue [Unknown]

NARRATIVE: CASE EVENT DATE: 20070508
